FAERS Safety Report 20874004 (Version 1)
Quarter: 2022Q2

REPORT INFORMATION
  Report Type: Spontaneous
  Country: US (occurrence: None)
  Receive Date: 20220525
  Receipt Date: 20220525
  Transmission Date: 20220720
  Serious: No
  Sender: FDA-Public Use
  Company Number: None

PATIENT
  Age: 40 Year
  Sex: Male
  Weight: 81.65 kg

DRUGS (1)
  1. BUPRENORPHINE HYDROCHLORIDE\NALOXONE HYDROCHLORIDE [Suspect]
     Active Substance: BUPRENORPHINE HYDROCHLORIDE\NALOXONE HYDROCHLORIDE
     Indication: Drug dependence
     Dosage: OTHER QUANTITY : 1-2 PILLS A DAY;?
     Route: 048
     Dates: start: 2021, end: 2021

REACTIONS (4)
  - Oral mucosal blistering [None]
  - Nausea [None]
  - Abdominal pain [None]
  - Drug intolerance [None]
